FAERS Safety Report 6346407-7 (Version None)
Quarter: 2009Q3

REPORT INFORMATION
  Report Type: 
  Country: None (occurrence: None)
  Receive Date: 20090821
  Receipt Date: 20090706
  Transmission Date: 20100115
  Serious: No
  Sender: FDA-Public Use
  Company Number: 8048603

PATIENT
  Age: 40 Year
  Sex: Female
  Weight: 85.9 kg

DRUGS (1)
  1. CIMZIA [Suspect]
     Indication: CROHN'S DISEASE
     Dosage: 400 MG SC
     Route: 058
     Dates: start: 20081229

REACTIONS (3)
  - DIARRHOEA [None]
  - DYSPNOEA EXERTIONAL [None]
  - GASTROINTESTINAL SOUNDS ABNORMAL [None]
